FAERS Safety Report 9633239 (Version 1)
Quarter: 2013Q4

REPORT INFORMATION
  Report Type: Spontaneous
  Country: US (occurrence: None)
  Receive Date: 20131018
  Receipt Date: 20131018
  Transmission Date: 20140711
  Serious: No
  Sender: FDA-Public Use
  Company Number: None

PATIENT
  Age: 15 Year
  Sex: Male
  Weight: 63.5 kg

DRUGS (1)
  1. MONTELUKAST SODIUM [Suspect]
     Indication: ASTHMA
     Dosage: 1 PILL AT BEDTIME TAKEN BY MOUTH
     Dates: start: 20130701, end: 20130901

REACTIONS (6)
  - Negativism [None]
  - Oppositional defiant disorder [None]
  - Anxiety [None]
  - Paranoia [None]
  - Aggression [None]
  - Aggression [None]
